FAERS Safety Report 6921037-4 (Version None)
Quarter: 2010Q3

REPORT INFORMATION
  Report Type: 
  Country: None (occurrence: None)
  Receive Date: 20100812
  Receipt Date: 20100806
  Transmission Date: 20110219
  Serious: Yes (Hospitalization, Other)
  Sender: FDA-Public Use
  Company Number: BE-ROCHE-708411

PATIENT
  Age: 72 Year
  Sex: Male

DRUGS (5)
  1. AVASTIN [Suspect]
     Dosage: STOP DATE REPORTED AS: MAI 2010
     Route: 042
     Dates: start: 20091130, end: 20100501
  2. IRINOTECAN HCL [Concomitant]
     Route: 042
     Dates: start: 20091130
  3. FOLINIC ACID [Concomitant]
     Route: 042
     Dates: start: 20091130
  4. FLUOROURACIL [Concomitant]
     Dosage: FORM: INTRAVENOUS BOLUS
     Route: 042
     Dates: start: 20091130, end: 20091130
  5. FLUOROURACIL [Concomitant]
     Dosage: FORM: CONTINUOUS PERFUSION
     Route: 042
     Dates: start: 20091130

REACTIONS (2)
  - GASTROINTESTINAL PERFORATION [None]
  - RECTAL ULCER [None]
